FAERS Safety Report 5899744-4 (Version None)
Quarter: 2008Q3

REPORT INFORMATION
  Report Type: 
  Country: None (occurrence: None)
  Receive Date: 20080926
  Receipt Date: 20080919
  Transmission Date: 20090109
  Serious: Yes (Other)
  Sender: FDA-Public Use
  Company Number: FR-SOLVAY-00308004469

PATIENT
  Age: 68 Year
  Sex: Male

DRUGS (2)
  1. FLECAINE 150 LP [Concomitant]
     Indication: TACHYCARDIA
     Dosage: DAILY DOSE: 1 DOSAGE FORM
     Route: 048
  2. ANDROGEL [Suspect]
     Indication: DRUG USE FOR UNKNOWN INDICATION
     Dosage: DAILY DOSE:  UNKNOWN
     Route: 062
     Dates: start: 20080819

REACTIONS (1)
  - TACHYCARDIA [None]
